FAERS Safety Report 15809152 (Version 4)
Quarter: 2019Q1

REPORT INFORMATION
  Report Type: Spontaneous
  Country: US (occurrence: US)
  Receive Date: 20190110
  Receipt Date: 20190204
  Transmission Date: 20190417
  Serious: Yes (Hospitalization)
  Sender: FDA-Public Use
  Company Number: US-ACTELION-A-NJ2018-184032

PATIENT
  Age: 70 Year
  Sex: Female

DRUGS (1)
  1. OPSUMIT [Suspect]
     Active Substance: MACITENTAN
     Indication: PULMONARY HYPERTENSION
     Dosage: 10 MG, QD
     Route: 048
     Dates: start: 20180913, end: 20190111

REACTIONS (8)
  - Abdominal abscess [Unknown]
  - Sepsis [Unknown]
  - Urinary tract infection [Unknown]
  - Malaise [Unknown]
  - Computerised tomogram abdomen abnormal [Unknown]
  - Liver abscess [Unknown]
  - Escherichia infection [Unknown]
  - Product dose omission [Unknown]

NARRATIVE: CASE EVENT DATE: 20181010
